FAERS Safety Report 7487703-X (Version None)
Quarter: 2011Q2

REPORT INFORMATION
  Report Type: 
  Country: None (occurrence: None)
  Receive Date: 20110518
  Receipt Date: 20110506
  Transmission Date: 20111010
  Serious: Yes (Other)
  Sender: FDA-Public Use
  Company Number: CA-AMGEN-CANSP2011018911

PATIENT
  Age: 73 Year
  Sex: Female
  Weight: 52.2 kg

DRUGS (5)
  1. HORMONES NOS [Concomitant]
  2. ENBREL [Suspect]
     Indication: PSORIATIC ARTHROPATHY
     Dosage: 50 MG, 2 TIMES/WK
     Route: 058
     Dates: start: 20090606, end: 20101201
  3. ENBREL [Suspect]
     Dosage: UNK
  4. CHOLESTEROL [Concomitant]
  5. ANTIHYPERTENSIVES [Concomitant]

REACTIONS (1)
  - BREAST CANCER [None]
